FAERS Safety Report 19899779 (Version 1)
Quarter: 2021Q3

REPORT INFORMATION
  Report Type: Spontaneous
  Country: US (occurrence: US)
  Receive Date: 20210929
  Receipt Date: 20210929
  Transmission Date: 20211014
  Serious: No
  Sender: FDA-Public Use
  Company Number: US-PFIZER INC-202101011954

PATIENT
  Age: 47 Year
  Sex: Female

DRUGS (12)
  1. DIAZEPAM. [Suspect]
     Active Substance: DIAZEPAM
     Indication: TREMOR
  2. GINKO BILOBA [GINKGO BILOBA] [Suspect]
     Active Substance: GINKGO
     Indication: TREMOR
  3. DIAZEPAM. [Suspect]
     Active Substance: DIAZEPAM
     Indication: TINNITUS
     Dosage: UNK
     Dates: start: 2021
  4. GINKO BILOBA [GINKGO BILOBA] [Suspect]
     Active Substance: GINKGO
     Indication: VOMITING
  5. HYDROXYZINE HCL [Suspect]
     Active Substance: HYDROXYZINE HYDROCHLORIDE
     Indication: TINNITUS
     Dosage: UNK
     Dates: start: 2021
  6. HYDROXYZINE HCL [Suspect]
     Active Substance: HYDROXYZINE HYDROCHLORIDE
     Indication: VOMITING
  7. ACETYLSALICYLIC ACID [Suspect]
     Active Substance: ASPIRIN
     Indication: VOMITING
  8. HYDROXYZINE HCL [Suspect]
     Active Substance: HYDROXYZINE HYDROCHLORIDE
     Indication: TREMOR
  9. DIAZEPAM. [Suspect]
     Active Substance: DIAZEPAM
     Indication: VOMITING
  10. GINKO BILOBA [GINKGO BILOBA] [Suspect]
     Active Substance: GINKGO
     Indication: TINNITUS
     Dosage: UNK
     Dates: start: 2021
  11. ACETYLSALICYLIC ACID [Suspect]
     Active Substance: ASPIRIN
     Indication: TINNITUS
     Dosage: UNK
     Dates: start: 2021
  12. ACETYLSALICYLIC ACID [Suspect]
     Active Substance: ASPIRIN
     Indication: TREMOR

REACTIONS (2)
  - Drug ineffective for unapproved indication [Unknown]
  - Off label use [Unknown]

NARRATIVE: CASE EVENT DATE: 2021
